FAERS Safety Report 5704391-0 (Version None)
Quarter: 2008Q2

REPORT INFORMATION
  Report Type: 
  Country: None (occurrence: None)
  Receive Date: 20080414
  Receipt Date: 20080403
  Transmission Date: 20081010
  Serious: Yes (Other)
  Sender: FDA-Public Use
  Company Number: B0399746A

PATIENT
  Age: 45 Year
  Sex: Male

DRUGS (8)
  1. BLINDED TRIAL MEDICATION [Suspect]
     Indication: HIV INFECTION
     Route: 048
     Dates: start: 20051014, end: 20051118
  2. RIFAMPICIN [Concomitant]
     Dates: end: 20051115
  3. ISONIAZID [Concomitant]
     Dates: end: 20051115
  4. PYRAZINAMIDE [Concomitant]
     Dates: end: 20051103
  5. ETHAMBUTOL HYDROCHLORIDE [Concomitant]
  6. DEXAMETHASONE [Concomitant]
  7. VITAMIN B [Concomitant]
  8. IDARAC [Concomitant]

REACTIONS (2)
  - HEPATITIS [None]
  - RASH MACULO-PAPULAR [None]
